FAERS Safety Report 23986906 (Version 1)
Quarter: 2024Q2

REPORT INFORMATION
  Report Type: Spontaneous
  Country: US (occurrence: US)
  Receive Date: 20240618
  Receipt Date: 20240618
  Transmission Date: 20240716
  Serious: No
  Sender: FDA-Public Use
  Company Number: US-SANDOZ-SDZ2024US058508

PATIENT
  Sex: Female

DRUGS (1)
  1. ALPRAZOLAM [Suspect]
     Active Substance: ALPRAZOLAM
     Indication: Product used for unknown indication
     Dosage: 0.25 MG, QD (1 TABLET A DAY)
     Route: 048

REACTIONS (4)
  - Chest pain [Unknown]
  - Vomiting [Unknown]
  - Arthralgia [Unknown]
  - Headache [Unknown]
